FAERS Safety Report 6873252-6 (Version None)
Quarter: 2010Q3

REPORT INFORMATION
  Report Type: 
  Country: None (occurrence: None)
  Receive Date: 20100721
  Receipt Date: 20100708
  Transmission Date: 20110219
  Serious: Yes (Death, Life-Threatening, Hospitalization, Other)
  Sender: FDA-Public Use
  Company Number: 2009AC000336

PATIENT
  Age: 73 Year
  Sex: Female

DRUGS (77)
  1. DIGOXIN [Suspect]
     Dosage: .125 MG;QD;PO
     Route: 048
     Dates: start: 20040504, end: 20050710
  2. DIGOXIN [Suspect]
     Indication: ATRIAL FIBRILLATION
     Dosage: 0.5 MG;BID;IV
     Route: 042
     Dates: start: 20040427, end: 20040427
  3. DIGOXIN [Suspect]
     Dosage: 0.250 MG;QD;PO
     Route: 048
     Dates: start: 20050711, end: 20060830
  4. DIGOXIN [Suspect]
     Dosage: 0.125 MG;QD;PO
     Route: 048
     Dates: start: 20060831, end: 20071019
  5. DIGOXIN [Suspect]
     Dosage: 0.125 MG;QD;PO
     Route: 048
     Dates: start: 20071022, end: 20080428
  6. PLAVIX [Concomitant]
  7. PREDNISONE [Concomitant]
  8. VYTORIN [Concomitant]
  9. MICRO-K [Concomitant]
  10. CORDARONE [Concomitant]
  11. ASPIRIN [Concomitant]
  12. AMIODARONE HCL [Concomitant]
  13. TRAMADOL HYDROCHLORIDE [Concomitant]
  14. POTASSIUM [Concomitant]
  15. NYSTATIN [Concomitant]
  16. BENEFIBERM PACERONE [Concomitant]
  17. ZOCOR [Concomitant]
  18. FLEXERIL [Concomitant]
  19. LIDODERM [Concomitant]
  20. ERGOCALCIFEROL [Concomitant]
  21. DURAGESIC-100 [Concomitant]
  22. DARVOCET [Concomitant]
  23. MINITRAN [Concomitant]
  24. GLYCOLAX [Concomitant]
  25. LISINOPRIL [Concomitant]
  26. FUROSEMIDE [Concomitant]
  27. AMIODARONE HCL [Concomitant]
  28. PROPRANOLOL [Concomitant]
  29. NITROGLYCERIN [Concomitant]
  30. ERYTHROMYCIN [Concomitant]
  31. LIPITOR [Concomitant]
  32. KETOCONOZOLE [Concomitant]
  33. PEPCID AC [Concomitant]
  34. PRAVACHOL [Concomitant]
  35. AVELOX [Concomitant]
  36. LORTAB [Concomitant]
  37. METAMUCIL-2 [Concomitant]
  38. PROTONIX [Concomitant]
  39. NITRO-DUR [Concomitant]
  40. INDERAL [Concomitant]
  41. MIRALAX [Concomitant]
  42. VALIUM [Concomitant]
  43. MORPHINE [Concomitant]
  44. ZOFRAN [Concomitant]
  45. ATROPINE [Concomitant]
  46. NITROSTAT [Concomitant]
  47. HEPARIN [Concomitant]
  48. CEFAZOLIN [Concomitant]
  49. CEFEPIME [Concomitant]
  50. EPINEPHRINE [Concomitant]
  51. LIDOCAINE [Concomitant]
  52. LOVENOX [Concomitant]
  53. CLOTRIMAZOLE [Concomitant]
  54. VANCOMYCIN [Concomitant]
  55. AUGMENTIN '125' [Concomitant]
  56. COLACE [Concomitant]
  57. SENOKOT [Concomitant]
  58. CARVEDILOL [Concomitant]
  59. SIMVASTATIN [Concomitant]
  60. RENAL CAPS [Concomitant]
  61. MULTI-VITAMIN [Concomitant]
  62. SENNA [Concomitant]
  63. LACTULOSE [Concomitant]
  64. VICODIN [Concomitant]
  65. IMDUR [Concomitant]
  66. ARANESP [Concomitant]
  67. WYGESIC [Concomitant]
  68. SKELAXIN [Concomitant]
  69. LOPRESSOR [Concomitant]
  70. KEFLEX [Concomitant]
  71. SOLU-MEDROL [Concomitant]
  72. NEXIUM [Concomitant]
  73. OMEPRAZOLE [Concomitant]
  74. DOPAMINE HCL [Concomitant]
  75. NEO-SYNEPHRINOL [Concomitant]
  76. HALDOL [Concomitant]
  77. ACETAMINOPHEN [Concomitant]

REACTIONS (36)
  - ALOPECIA [None]
  - ANAEMIA [None]
  - ATRIOVENTRICULAR BLOCK [None]
  - BACK PAIN [None]
  - BALANCE DISORDER [None]
  - BREAST CANCER [None]
  - CARDIAC ARREST [None]
  - CAROTID ARTERY ANEURYSM [None]
  - CONSTIPATION [None]
  - DIALYSIS [None]
  - DIARRHOEA [None]
  - DIZZINESS [None]
  - DYSPHONIA [None]
  - ECONOMIC PROBLEM [None]
  - EMOTIONAL DISORDER [None]
  - FALL [None]
  - GASTROINTESTINAL DISORDER [None]
  - HAEMORRHAGE [None]
  - HEPATIC NEOPLASM [None]
  - HYPOTENSION [None]
  - INCREASED TENDENCY TO BRUISE [None]
  - INSOMNIA [None]
  - LOSS OF CONSCIOUSNESS [None]
  - MULTIPLE INJURIES [None]
  - NECK PAIN [None]
  - PLEURAL EFFUSION [None]
  - POLLAKIURIA [None]
  - PYREXIA [None]
  - RENAL FAILURE [None]
  - RENAL FAILURE ACUTE [None]
  - RESTLESSNESS [None]
  - SINUS HEADACHE [None]
  - SPINAL OSTEOARTHRITIS [None]
  - SYNCOPE [None]
  - THERAPEUTIC AGENT TOXICITY [None]
  - URINARY INCONTINENCE [None]
